FAERS Safety Report 12531755 (Version 2)
Quarter: 2016Q3

REPORT INFORMATION
  Report Type: Spontaneous
  Country: US (occurrence: US)
  Receive Date: 20160706
  Receipt Date: 20160825
  Transmission Date: 20161109
  Serious: No
  Sender: FDA-Public Use
  Company Number: US-PFIZER INC-2016320510

PATIENT
  Age: 81 Year
  Sex: Female
  Weight: 60 kg

DRUGS (6)
  1. SYMBICORT [Concomitant]
     Active Substance: BUDESONIDE\FORMOTEROL FUMARATE DIHYDRATE
     Indication: ASTHMA
     Dosage: UNK (BUDESONIDE -160, FORMOTEROL FUMARATE-4.5 TWO PUFFS AT AM AND HS)
     Dates: start: 2008
  2. LEVOXYL [Suspect]
     Active Substance: LEVOTHYROXINE SODIUM
     Dosage: 112 UG, 1X/DAY
     Route: 048
     Dates: start: 1994
  3. LEVOXYL [Suspect]
     Active Substance: LEVOTHYROXINE SODIUM
     Indication: AUTOIMMUNE THYROIDITIS
     Dosage: 112 UG, 1X/DAY
     Route: 048
     Dates: start: 2001
  4. ESTRADIOL W/PROGESTERONE [Concomitant]
     Indication: MENOPAUSE
  5. ESTRADIOL W/PROGESTERONE [Concomitant]
     Indication: HORMONE REPLACEMENT THERAPY
  6. ESTRADIOL W/PROGESTERONE [Concomitant]
     Indication: OSTEOPENIA
     Dosage: UNK (0.025 PATCH OF WEEK TOPICAL PROGESTERONE)
     Dates: start: 1992

REACTIONS (3)
  - Anti-thyroid antibody positive [Unknown]
  - Anti-transglutaminase antibody increased [Recovering/Resolving]
  - Antigliadin antibody positive [Unknown]

NARRATIVE: CASE EVENT DATE: 20160627
